FAERS Safety Report 13747617 (Version 1)
Quarter: 2017Q3

REPORT INFORMATION
  Report Type: Report from Study
  Country: DE (occurrence: DE)
  Receive Date: 20170712
  Receipt Date: 20170712
  Transmission Date: 20171127
  Serious: No
  Sender: FDA-Public Use
  Company Number: DE-ROCHE-1960884

PATIENT
  Age: 65 Year
  Sex: Female

DRUGS (1)
  1. OCRELIZUMAB. [Suspect]
     Active Substance: OCRELIZUMAB
     Indication: MULTIPLE SCLEROSIS
     Route: 065
     Dates: start: 20170404

REACTIONS (2)
  - Urinary tract infection [Recovered/Resolved]
  - Dysaesthesia [Unknown]

NARRATIVE: CASE EVENT DATE: 20170504
